FAERS Safety Report 4724839-8 (Version None)
Quarter: 2005Q3

REPORT INFORMATION
  Report Type: 
  Country: None (occurrence: None)
  Receive Date: 20050726
  Receipt Date: 20050718
  Transmission Date: 20060218
  Serious: Yes (Death)
  Sender: FDA-Public Use
  Company Number: US-JNJFOC-20050504633

PATIENT
  Sex: Male

DRUGS (9)
  1. RISPERDAL CONSTA [Suspect]
     Route: 030
  2. RISPERDAL CONSTA [Suspect]
     Indication: SCHIZOPHRENIA
     Route: 030
  3. CLONAZEPAM [Concomitant]
     Indication: ANXIETY
  4. VISTARIL [Concomitant]
     Indication: ANXIETY
  5. SEROQUEL [Concomitant]
  6. SEROQUEL [Concomitant]
     Indication: BIPOLAR DISORDER
  7. DEPAKOTE [Concomitant]
     Indication: BIPOLAR DISORDER
  8. COGENTIN [Concomitant]
  9. EFFEXOR [Concomitant]
     Indication: DEPRESSION

REACTIONS (2)
  - DEEP VEIN THROMBOSIS [None]
  - PULMONARY EMBOLISM [None]
